FAERS Safety Report 5501468-X (Version None)
Quarter: 2007Q4

REPORT INFORMATION
  Report Type: 
  Country: None (occurrence: None)
  Receive Date: 20071023
  Receipt Date: 20060921
  Transmission Date: 20080405
  Serious: Yes (Death, Hospitalization, Other)
  Sender: FDA-Public Use
  Company Number: 30772

PATIENT
  Age: 76 Year
  Sex: Female

DRUGS (14)
  1. CYTARABINE [Suspect]
     Indication: CHRONIC LYMPHOCYTIC LEUKAEMIA
     Dosage: 1G/M2/IV
     Route: 042
     Dates: start: 20060808, end: 20060811
  2. CYTARABINE [Concomitant]
  3. OXALIPLATIN [Concomitant]
  4. FLUDARABINE PHOSPHATE [Concomitant]
  5. RITU [Concomitant]
  6. AMBIEN [Concomitant]
  7. BACTRIM [Concomitant]
  8. FAMVIR [Concomitant]
  9. FENTANYL [Concomitant]
  10. FLUCONAZOLE [Concomitant]
  11. ALLOPURINOL [Concomitant]
  12. OXYCODONE HCL [Concomitant]
  13. SENOKOT [Concomitant]
  14. ZOFRAN [Concomitant]

REACTIONS (1)
  - FEBRILE NEUTROPENIA [None]
